FAERS Safety Report 4456596-7 (Version None)
Quarter: 2004Q3

REPORT INFORMATION
  Report Type: 
  Country: None (occurrence: None)
  Receive Date: 20040921
  Receipt Date: 20040909
  Transmission Date: 20050211
  Serious: Yes (Hospitalization)
  Sender: FDA-Public Use
  Company Number: 03P-163-0229889-00

PATIENT
  Age: 54 Year
  Sex: Male
  Weight: 91.6266 kg

DRUGS (23)
  1. KALETRA [Suspect]
     Indication: HIV INFECTION
     Dosage: PER ORAL
     Route: 048
     Dates: start: 20021113, end: 20030804
  2. ACETYLSALICYLIC ACID [Concomitant]
  3. ZITHROMAX [Concomitant]
  4. MYCOTUSS [Concomitant]
  5. FENOFIBRATE [Concomitant]
  6. ROSIGLITAZONE MALEATE [Concomitant]
  7. METOPROLOL SUCCINATE [Concomitant]
  8. BUPROPION HYDROCHLORIDE [Concomitant]
  9. TRAZODONE HCL [Concomitant]
  10. TEMAZEPAM [Concomitant]
  11. MULTI-VITAMINS [Concomitant]
  12. TENOFOVIR [Concomitant]
  13. EMTRICITABINE [Concomitant]
  14. PREDNISONE [Concomitant]
  15. SODIUM BICARBONATE [Concomitant]
  16. CIPROFLOXACIN HYDROCHLORIDE [Concomitant]
  17. PHENERGAN HCL [Concomitant]
  18. METOPROLOL [Concomitant]
  19. TESTOSTERONE [Concomitant]
  20. LEXAPRO [Concomitant]
  21. CALCIUM ACETATE [Concomitant]
  22. EPOETIN ALFA [Concomitant]
  23. METOCLOPRAMIDE [Concomitant]

REACTIONS (10)
  - ANAEMIA [None]
  - DEPRESSION [None]
  - DIALYSIS [None]
  - HAEMATEMESIS [None]
  - HYPERMAGNESAEMIA [None]
  - HYPOCALCAEMIA [None]
  - METABOLIC ACIDOSIS [None]
  - NEPHRITIS INTERSTITIAL [None]
  - POLLAKIURIA [None]
  - RENAL FAILURE [None]
